FAERS Safety Report 10362118 (Version 1)
Quarter: 2014Q1

REPORT INFORMATION
  Report Type: Spontaneous
  Country: US (occurrence: None)
  Receive Date: 20140306
  Receipt Date: 20140306
  Transmission Date: 20141002
  Serious: Yes (Other)
  Sender: FDA-Public Use
  Company Number: 163-21880-13020919

PATIENT
  Age: 49 Year
  Sex: Male
  Weight: 95.26 kg

DRUGS (7)
  1. REVLIMID (LENALIDOMIDE) (25 MILLIGRAM, CAPSULES) [Suspect]
     Indication: PLASMA CELL MYELOMA
     Route: 048
     Dates: start: 20110324
  2. DAILY MULTIPLE VITAMIN (UNKNOWN) [Concomitant]
  3. DEXAMETHASONE (UNKNOWN) [Concomitant]
  4. LOVENOX (HEPARIN-FRACTION, SODIUM SALT) (UNKNOWN) [Concomitant]
  5. VELCADE (BORTEZOMIB) [Concomitant]
  6. VITAMIN D (ERGOCALCIFEROL) (UNKNOWN) [Concomitant]
  7. ZOMETA (ZOLEDRONIC ACID) (UNKNOWN) [Concomitant]

REACTIONS (1)
  - Lower respiratory tract infection fungal [None]
